FAERS Safety Report 17965788 (Version 1)
Quarter: 2020Q2

REPORT INFORMATION
  Report Type: Report from Study
  Country: JP (occurrence: JP)
  Receive Date: 20200630
  Receipt Date: 20200630
  Transmission Date: 20200714
  Serious: Yes (Hospitalization)
  Sender: FDA-Public Use
  Company Number: JP-GILEAD-2018-0374412

PATIENT
  Age: 54 Year
  Sex: Male

DRUGS (8)
  1. EMTRICITABINE;TENOFOVIR DISOPROXIL FUMARATE [Suspect]
     Active Substance: EMTRICITABINE\TENOFOVIR DISOPROXIL FUMARATE
     Indication: HIV INFECTION
     Dosage: 1 DF, QD
     Route: 048
     Dates: start: 20131114, end: 20170309
  2. PREZISTANAIVE [Suspect]
     Active Substance: DARUNAVIR
     Indication: HIV INFECTION
     Dosage: 800 MG, QD
     Route: 048
     Dates: start: 20131114, end: 20140309
  3. PREZISTANAIVE [Suspect]
     Active Substance: DARUNAVIR
     Dosage: 800 MG, QD
     Route: 048
     Dates: start: 20140310, end: 20150106
  4. TIVICAY [Concomitant]
     Active Substance: DOLUTEGRAVIR SODIUM
     Indication: HIV INFECTION
     Dosage: 50 MG, QD
     Route: 048
     Dates: start: 20150107, end: 20190728
  5. VESICARE [Concomitant]
     Active Substance: SOLIFENACIN SUCCINATE
     Indication: DYSURIA
     Dosage: 5 MG, QD
     Route: 048
     Dates: start: 20131112, end: 20140331
  6. SAMTIREL [Concomitant]
     Active Substance: ATOVAQUONE
     Indication: ANTIFUNGAL PROPHYLAXIS
     Dosage: 1500 MG, QD
     Route: 048
     Dates: start: 20131126, end: 20150105
  7. NORVIR [Suspect]
     Active Substance: RITONAVIR
     Indication: HIV INFECTION
     Dosage: 100 MG, QD
     Route: 048
     Dates: start: 20131114, end: 20150106
  8. MYCOBUTIN [Concomitant]
     Active Substance: RIFABUTIN

REACTIONS (3)
  - Immune reconstitution inflammatory syndrome [Not Recovered/Not Resolved]
  - Atypical mycobacterial infection [Not Recovered/Not Resolved]
  - Blood alkaline phosphatase increased [Recovered/Resolved]

NARRATIVE: CASE EVENT DATE: 20131128
